FAERS Safety Report 6220336-1 (Version None)
Quarter: 2009Q2

REPORT INFORMATION
  Report Type: 
  Country: None (occurrence: None)
  Receive Date: 20090610
  Receipt Date: 20090602
  Transmission Date: 20091009
  Serious: Yes (Other)
  Sender: FDA-Public Use
  Company Number: US-PFIZER INC-2009187755

PATIENT
  Sex: Female
  Weight: 54.431 kg

DRUGS (1)
  1. NICOTROL [Suspect]
     Indication: SMOKING CESSATION THERAPY
     Dates: start: 20090313, end: 20090314

REACTIONS (5)
  - ABDOMINAL DISCOMFORT [None]
  - FALL [None]
  - HEADACHE [None]
  - NAUSEA [None]
  - VOMITING [None]
